FAERS Safety Report 7909710-2 (Version None)
Quarter: 2011Q4

REPORT INFORMATION
  Report Type: 
  Country: None (occurrence: None)
  Receive Date: 20111111
  Receipt Date: 20111108
  Transmission Date: 20120403
  Serious: Yes (Hospitalization)
  Sender: FDA-Public Use
  Company Number: BR-ABBOTT-11P-020-0853748-00

PATIENT
  Sex: Female
  Weight: 62 kg

DRUGS (11)
  1. OMEPRAZOLE [Concomitant]
     Indication: GASTRIC DISORDER
     Route: 048
  2. DRAMIN B-6 [Concomitant]
     Indication: NAUSEA
     Route: 048
  3. HUMIRA [Suspect]
     Route: 058
  4. DRAMIN B-6 [Concomitant]
     Indication: VOMITING
     Route: 048
  5. HUMIRA [Suspect]
     Indication: CROHN'S DISEASE
     Route: 058
     Dates: start: 20110726
  6. AZATHIOPRINE [Suspect]
     Indication: CROHN'S DISEASE
  7. PENTASA [Suspect]
     Indication: CROHN'S DISEASE
     Route: 048
  8. OMEPRAZOLE [Concomitant]
     Indication: PROPHYLAXIS
  9. HUMIRA [Suspect]
     Dates: start: 20111108
  10. MORPHINE SULFATE [Concomitant]
     Indication: PAIN
     Route: 048
     Dates: start: 20111001
  11. HUMIRA [Suspect]
     Route: 058

REACTIONS (10)
  - ABDOMINAL PAIN [None]
  - ERYTHEMA [None]
  - VOMITING [None]
  - JOINT SWELLING [None]
  - DIARRHOEA [None]
  - CROHN'S DISEASE [None]
  - GASTROINTESTINAL INFLAMMATION [None]
  - RASH MACULAR [None]
  - NAUSEA [None]
  - MALAISE [None]
